FAERS Safety Report 9994675 (Version 1)
Quarter: 2014Q1

REPORT INFORMATION
  Report Type: Spontaneous
  Country: US (occurrence: None)
  Receive Date: 20140306
  Receipt Date: 20140306
  Transmission Date: 20141002
  Serious: Yes (Death)
  Sender: FDA-Public Use
  Company Number: 1402-0417

PATIENT
  Age: 94 Year
  Sex: 0

DRUGS (1)
  1. EYLEA [Suspect]
     Dates: start: 20120202, end: 20130911

REACTIONS (1)
  - Death [None]
